FAERS Safety Report 15637920 (Version 1)
Quarter: 2018Q4

REPORT INFORMATION
  Report Type: Spontaneous
  Country: US (occurrence: US)
  Receive Date: 20181120
  Receipt Date: 20181120
  Transmission Date: 20190205
  Serious: No
  Sender: FDA-Public Use
  Company Number: US-JNJFOC-20180511342

PATIENT
  Sex: Female
  Weight: 118 kg

DRUGS (10)
  1. IMBRUVICA [Suspect]
     Active Substance: IBRUTINIB
     Indication: B-CELL SMALL LYMPHOCYTIC LYMPHOMA
     Route: 048
     Dates: start: 20170125
  2. LORAZEPAM. [Concomitant]
     Active Substance: LORAZEPAM
  3. NAPROXEN. [Concomitant]
     Active Substance: NAPROXEN
  4. ATORVASTATIN [Concomitant]
     Active Substance: ATORVASTATIN
  5. OMEPRAZOLE. [Concomitant]
     Active Substance: OMEPRAZOLE
  6. BACTRIM [Concomitant]
     Active Substance: SULFAMETHOXAZOLE\TRIMETHOPRIM
  7. ORCIPRENALINE [Concomitant]
     Active Substance: METAPROTERENOL
  8. AMLODIPINE [Concomitant]
     Active Substance: AMLODIPINE BESYLATE
  9. IMBRUVICA [Suspect]
     Active Substance: IBRUTINIB
     Indication: B-CELL SMALL LYMPHOCYTIC LYMPHOMA
     Route: 048
     Dates: start: 201708
  10. ROPINIROLE. [Concomitant]
     Active Substance: ROPINIROLE

REACTIONS (3)
  - Neuropathy peripheral [Unknown]
  - Pain in extremity [Unknown]
  - Nausea [Unknown]
